FAERS Safety Report 21689494 (Version 1)
Quarter: 2022Q4

REPORT INFORMATION
  Report Type: Report from Study
  Country: US (occurrence: US)
  Receive Date: 20221206
  Receipt Date: 20221206
  Transmission Date: 20230112
  Serious: No
  Sender: FDA-Public Use
  Company Number: US-ABBVIE-4191774

PATIENT
  Age: 11 Year
  Sex: Male

DRUGS (1)
  1. HUMIRA [Suspect]
     Active Substance: ADALIMUMAB
     Indication: Product used for unknown indication
     Dosage: CITRATE FREE, EVENT FLARE UP CESSATION DATE 2022
     Route: 058

REACTIONS (2)
  - Condition aggravated [Recovered/Resolved]
  - Inadequate diet [Unknown]

NARRATIVE: CASE EVENT DATE: 20221001
